FAERS Safety Report 9331206 (Version 1)
Quarter: 2013Q2

REPORT INFORMATION
  Report Type: Spontaneous
  Country: IT (occurrence: IT)
  Receive Date: 20130605
  Receipt Date: 20130605
  Transmission Date: 20140414
  Serious: Yes (Life-Threatening)
  Sender: FDA-Public Use
  Company Number: IT-TEVA-408778ISR

PATIENT
  Age: 63 Year
  Sex: Male

DRUGS (1)
  1. FLUOROURACILE TEVA [Suspect]
     Indication: OESOPHAGEAL CARCINOMA
     Dosage: 1280 MILLIGRAM DAILY;
     Route: 042
     Dates: start: 20130524, end: 20130525

REACTIONS (1)
  - Sinus bradycardia [Recovered/Resolved]
